FAERS Safety Report 5526900-7 (Version None)
Quarter: 2007Q4

REPORT INFORMATION
  Report Type: 
  Country: None (occurrence: None)
  Receive Date: 20071127
  Receipt Date: 20071117
  Transmission Date: 20080405
  Serious: No
  Sender: FDA-Public Use
  Company Number: US-PFIZER INC-2007088569

PATIENT
  Sex: Male

DRUGS (1)
  1. R-GENE 10 [Suspect]

REACTIONS (1)
  - NO ADVERSE REACTION [None]
